FAERS Safety Report 10196581 (Version 6)
Quarter: 2015Q2

REPORT INFORMATION
  Report Type: Spontaneous
  Country: US (occurrence: US)
  Receive Date: 20140527
  Receipt Date: 20150416
  Transmission Date: 20150821
  Serious: Yes (Hospitalization, Disabling, Other)
  Sender: FDA-Public Use
  Company Number: US-009507513-1405USA011541

PATIENT
  Sex: Female
  Weight: 48.73 kg

DRUGS (9)
  1. KRILL OIL [Concomitant]
     Active Substance: DIETARY SUPPLEMENT
     Dosage: 300 MG, QD
     Dates: start: 2000
  2. BIOTIN (+) THIOCTIC ACID [Concomitant]
     Dosage: 333 MCG/100 MG, TIW
     Dates: start: 2000
  3. CALCIUM CITRATE (+) VITAMIN D (UNSPECIFIED) [Concomitant]
     Dosage: 400 MG/500 IU, QD
     Dates: start: 2000
  4. TURMERIC [Concomitant]
     Active Substance: TURMERIC
     Dosage: 450 MG, QD
     Dates: start: 2000
  5. CHONDROITIN SULFATE SODIUM (+) GLUCOSAMINE SULFATE [Concomitant]
     Dosage: 400 MG/500 MG, QD
     Dates: start: 2000
  6. PROBIOTICS (UNSPECIFIED) [Concomitant]
     Active Substance: PROBIOTICS NOS
     Dosage: 350 MG, QD
     Dates: start: 2000
  7. FOSAMAX [Suspect]
     Active Substance: ALENDRONATE SODIUM
     Indication: OSTEOPOROSIS
     Dosage: 70 MG, QW
     Route: 048
     Dates: start: 20020912, end: 200703
  8. UBIDECARENONE [Concomitant]
     Active Substance: UBIDECARENONE
     Dosage: 100 MG, QD
     Dates: start: 2000
  9. PYRIDOXINE [Concomitant]
     Active Substance: PYRIDOXINE
     Dosage: 100 MG, QD
     Dates: start: 2000

REACTIONS (17)
  - Femur fracture [Not Recovered/Not Resolved]
  - Wrist fracture [Unknown]
  - Mastectomy [Unknown]
  - Oral surgery [Unknown]
  - Gingival atrophy [Unknown]
  - Breast hyperplasia [Unknown]
  - Invasive lobular breast carcinoma [Unknown]
  - Radiotherapy to breast [Unknown]
  - Osteopenia [Unknown]
  - Fibrocystic breast disease [Unknown]
  - Biopsy lymph gland [Unknown]
  - Gastrooesophageal reflux disease [Unknown]
  - Tonsillar disorder [Unknown]
  - Internal fixation of fracture [Unknown]
  - Radius fracture [Unknown]
  - Breast calcifications [Unknown]
  - Osteoporosis [Not Recovered/Not Resolved]

NARRATIVE: CASE EVENT DATE: 2004
